FAERS Safety Report 13194332 (Version 2)
Quarter: 2018Q4

REPORT INFORMATION
  Report Type: Spontaneous
  Country: US (occurrence: US)
  Receive Date: 20170207
  Receipt Date: 20181218
  Transmission Date: 20190204
  Serious: No
  Sender: FDA-Public Use
  Company Number: US-JAZZ-2016-US-023419

PATIENT
  Sex: Male

DRUGS (6)
  1. URSODIOL. [Concomitant]
     Active Substance: URSODIOL
  2. XYREM [Suspect]
     Active Substance: SODIUM OXYBATE
     Indication: CATAPLEXY
     Dosage: DOSE ADJUSTMENT
     Route: 048
     Dates: start: 2003, end: 2013
  3. N-ACETYL-L-CYSTEINE [Concomitant]
     Active Substance: ACETYLCYSTEINE
  4. XYREM [Suspect]
     Active Substance: SODIUM OXYBATE
     Dosage: 4.5 G, BID
     Route: 048
     Dates: start: 201302
  5. XYREM [Suspect]
     Active Substance: SODIUM OXYBATE
     Indication: NARCOLEPSY
     Dosage: 2.25 G, BID
     Route: 048
     Dates: start: 200311, end: 2003
  6. LOVENOX [Concomitant]
     Active Substance: ENOXAPARIN SODIUM

REACTIONS (11)
  - Pre-existing condition improved [Unknown]
  - Vertebral osteophyte [Unknown]
  - Pain [Unknown]
  - Therapeutic response unexpected [Unknown]
  - Connective tissue disorder [Unknown]
  - Malaise [Unknown]
  - Hiatus hernia [Unknown]
  - Scoliosis [Unknown]
  - Dizziness [Unknown]
  - Carpal tunnel syndrome [Unknown]
  - Thinking abnormal [Unknown]
